FAERS Safety Report 7861147-0 (Version None)
Quarter: 2011Q4

REPORT INFORMATION
  Report Type: 
  Country: None (occurrence: None)
  Receive Date: 20111027
  Receipt Date: 20111018
  Transmission Date: 20120403
  Serious: Yes (Disabling)
  Sender: FDA-Public Use
  Company Number: FR-MILLENNIUM PHARMACEUTICALS, INC.-2011-05049

PATIENT

DRUGS (15)
  1. VELCADE [Suspect]
     Dosage: 1.5 MG, UNK
     Route: 042
     Dates: start: 20110705
  2. VELCADE [Suspect]
     Dosage: UNK
     Route: 042
     Dates: start: 20110823
  3. ACEBUTOLOL [Concomitant]
  4. BACTRIM [Concomitant]
  5. THALIDOMIDE [Suspect]
     Indication: MULTIPLE MYELOMA
     Dosage: 100 MG, UNK
     Route: 042
     Dates: start: 20110705, end: 20110714
  6. LANSOPRAZOLE [Concomitant]
  7. LYRICA [Concomitant]
  8. LOVENOX [Concomitant]
  9. DEXAMETHASONE [Concomitant]
     Indication: MULTIPLE MYELOMA
     Dosage: 40 MG, UNK
     Dates: start: 20110525, end: 20110823
  10. LEVOTHYROXINE SODIUM [Concomitant]
  11. VELCADE [Suspect]
     Indication: MULTIPLE MYELOMA
     Dosage: 2 MG, UNK
     Dates: start: 20110525
  12. CRESTOR [Concomitant]
  13. VELCADE [Suspect]
     Dosage: UNK
     Route: 042
     Dates: start: 20110625
  14. ARIMIDEX [Concomitant]
  15. ZELITREX                           /01269701/ [Concomitant]

REACTIONS (4)
  - GENERAL PHYSICAL HEALTH DETERIORATION [None]
  - VOMITING [None]
  - NAUSEA [None]
  - NEUROPATHY PERIPHERAL [None]
